FAERS Safety Report 7137901-X (Version None)
Quarter: 2010Q4

REPORT INFORMATION
  Report Type: 
  Country: None (occurrence: None)
  Receive Date: 20101103
  Receipt Date: 20100713
  Transmission Date: 20110411
  Serious: Yes (Other)
  Sender: FDA-Public Use
  Company Number: US-WYE-H16481810

PATIENT
  Age: 29 Year
  Sex: Female
  Weight: 57.2 kg

DRUGS (6)
  1. EFFEXOR XR [Suspect]
     Indication: MAJOR DEPRESSION
     Dosage: SEE IMAGE
     Dates: start: 20100601, end: 20100601
  2. EFFEXOR XR [Suspect]
     Indication: MAJOR DEPRESSION
     Dosage: SEE IMAGE
     Dates: end: 20100601
  3. EFFEXOR XR [Suspect]
     Indication: MAJOR DEPRESSION
     Dosage: SEE IMAGE
     Dates: start: 20070501
  4. EFFEXOR XR [Suspect]
     Indication: MAJOR DEPRESSION
     Dosage: SEE IMAGE
     Dates: start: 20100601
  5. CONCERTA [Concomitant]
  6. MELATONIN (MELATONIN) [Concomitant]

REACTIONS (13)
  - AFFECT LABILITY [None]
  - ANGER [None]
  - ANXIETY [None]
  - CONFUSIONAL STATE [None]
  - CRYING [None]
  - DIZZINESS [None]
  - DRUG WITHDRAWAL SYNDROME [None]
  - FEAR [None]
  - IRRITABILITY [None]
  - MUSCULAR WEAKNESS [None]
  - MYALGIA [None]
  - NAUSEA [None]
  - VOMITING [None]
